FAERS Safety Report 9899480 (Version 1)
Quarter: 2014Q1

REPORT INFORMATION
  Report Type: Spontaneous
  Country: CO (occurrence: CO)
  Receive Date: 20140214
  Receipt Date: 20140214
  Transmission Date: 20141002
  Serious: Yes (Other)
  Sender: FDA-Public Use
  Company Number: CO-PFIZER INC-2014043183

PATIENT
  Age: 66 Year
  Sex: Male

DRUGS (1)
  1. NORVAS [Suspect]
     Indication: BLOOD PRESSURE INCREASED
     Dosage: 10 MG, 1X/DAY
     Route: 048
     Dates: start: 2011, end: 201311

REACTIONS (1)
  - Renal disorder [Recovering/Resolving]
